FAERS Safety Report 16472803 (Version 1)
Quarter: 2019Q2

REPORT INFORMATION
  Report Type: Spontaneous
  Country: US (occurrence: US)
  Receive Date: 20190515
  Receipt Date: 20190515
  Transmission Date: 20190711
  Serious: No
  Sender: FDA-Public Use
  Company Number: None

PATIENT
  Age: 78 Year
  Sex: Male

DRUGS (1)
  1. SIMPONI [Suspect]
     Active Substance: GOLIMUMAB
     Indication: RHEUMATOID ARTHRITIS
     Dosage: OTHER FREQUENCY: OTHER
     Route: 058
     Dates: start: 201805

REACTIONS (3)
  - Product distribution issue [None]
  - Condition aggravated [None]
  - Pain [None]

NARRATIVE: CASE EVENT DATE: 20190515
